FAERS Safety Report 5578959-9 (Version None)
Quarter: 2008Q1

REPORT INFORMATION
  Report Type: 
  Country: None (occurrence: None)
  Receive Date: 20080102
  Receipt Date: 20071203
  Transmission Date: 20080703
  Serious: No
  Sender: FDA-Public Use
  Company Number: US-BAYER-200715238NA

PATIENT
  Sex: Female

DRUGS (1)
  1. CIPRO [Suspect]
     Indication: DIVERTICULITIS
     Dosage: AS USED: 750 MG
     Route: 048
     Dates: start: 20071123

REACTIONS (4)
  - DIZZINESS [None]
  - PALPITATIONS [None]
  - SOMNOLENCE [None]
  - VOMITING [None]
